FAERS Safety Report 14845349 (Version 2)
Quarter: 2019Q1

REPORT INFORMATION
  Report Type: Report from Study
  Country: JP (occurrence: JP)
  Receive Date: 20180504
  Receipt Date: 20190116
  Transmission Date: 20190417
  Serious: Yes (Other)
  Sender: FDA-Public Use
  Company Number: JP-ROCHE-2037607

PATIENT

DRUGS (5)
  1. IRINOTECAN [Suspect]
     Active Substance: IRINOTECAN
     Indication: COLORECTAL CANCER METASTATIC
     Dosage: OVER THE COURSE OF 1 HOUR ON DAY 1
     Route: 042
  2. BEVACIZUMAB. [Suspect]
     Active Substance: BEVACIZUMAB
     Indication: COLORECTAL CANCER METASTATIC
     Dosage: ON DAY 1?FIRST INFUSION WAS DELIVERED OVER THE COURSE OF 90 MINUTES, ?SECOND INFUSION OVER THE COURS
     Route: 042
  3. OXALIPLATIN. [Suspect]
     Active Substance: OXALIPLATIN
     Indication: COLORECTAL CANCER METASTATIC
     Route: 042
  4. FLUOROURACIL. [Suspect]
     Active Substance: FLUOROURACIL
     Indication: COLORECTAL CANCER METASTATIC
     Dosage: 46-H, STARTING ON DAY 1 AND REPEATED EVERY 2 WEEKS
     Route: 042
  5. L-LEUCOVORIN [Suspect]
     Active Substance: LEUCOVORIN
     Indication: COLORECTAL CANCER METASTATIC
     Dosage: ON DAY 1?OVER THE COURSE OF 2 HOURS
     Route: 042

REACTIONS (16)
  - Peripheral sensory neuropathy [Unknown]
  - Diarrhoea [Unknown]
  - Febrile neutropenia [Unknown]
  - Decreased appetite [Unknown]
  - Anaemia [Unknown]
  - Neutropenia [Unknown]
  - Hypoalbuminaemia [Unknown]
  - Nausea [Unknown]
  - Leukopenia [Unknown]
  - Fatigue [Unknown]
  - Proteinuria [Unknown]
  - Hyponatraemia [Unknown]
  - Platelet count decreased [Unknown]
  - Hypertension [Unknown]
  - Stomatitis [Unknown]
  - Hypokalaemia [Unknown]
